FAERS Safety Report 8078420-6 (Version None)
Quarter: 2012Q1

REPORT INFORMATION
  Report Type: 
  Country: None (occurrence: None)
  Receive Date: 20120123
  Receipt Date: 20120116
  Transmission Date: 20120608
  Serious: Yes (Other)
  Sender: FDA-Public Use
  Company Number: US-ZYDUS-000292

PATIENT

DRUGS (1)
  1. AZATHIOPRINE [Suspect]
     Indication: PEMPHIGOID

REACTIONS (2)
  - MUCOCUTANEOUS ULCERATION [None]
  - EPSTEIN-BARR VIRUS INFECTION [None]
